FAERS Safety Report 23852412 (Version 3)
Quarter: 2025Q2

REPORT INFORMATION
  Report Type: Report from Study
  Country: CA (occurrence: CA)
  Receive Date: 20240514
  Receipt Date: 20250521
  Transmission Date: 20250716
  Serious: Yes (Death)
  Sender: MYLAN
  Company Number: CA-MYLANLABS-2024M1043232

PATIENT
  Age: 43 Year
  Sex: Male

DRUGS (48)
  1. VENLAFAXINE [Suspect]
     Active Substance: VENLAFAXINE HYDROCHLORIDE
     Indication: Product used for unknown indication
  2. VENLAFAXINE [Suspect]
     Active Substance: VENLAFAXINE HYDROCHLORIDE
     Route: 065
  3. VENLAFAXINE [Suspect]
     Active Substance: VENLAFAXINE HYDROCHLORIDE
     Route: 065
  4. VENLAFAXINE [Suspect]
     Active Substance: VENLAFAXINE HYDROCHLORIDE
  5. CAFFEINE [Suspect]
     Active Substance: CAFFEINE
     Indication: Product used for unknown indication
  6. CAFFEINE [Suspect]
     Active Substance: CAFFEINE
     Route: 065
  7. CAFFEINE [Suspect]
     Active Substance: CAFFEINE
     Route: 065
  8. CAFFEINE [Suspect]
     Active Substance: CAFFEINE
  9. ALCOHOL [Suspect]
     Active Substance: ALCOHOL
     Indication: Product used for unknown indication
  10. ALCOHOL [Suspect]
     Active Substance: ALCOHOL
     Route: 065
  11. ALCOHOL [Suspect]
     Active Substance: ALCOHOL
     Route: 065
  12. ALCOHOL [Suspect]
     Active Substance: ALCOHOL
  13. NICOTINE [Suspect]
     Active Substance: NICOTINE
     Indication: Product used for unknown indication
  14. NICOTINE [Suspect]
     Active Substance: NICOTINE
     Route: 065
  15. NICOTINE [Suspect]
     Active Substance: NICOTINE
     Route: 065
  16. NICOTINE [Suspect]
     Active Substance: NICOTINE
  17. TRAZODONE [Suspect]
     Active Substance: TRAZODONE HYDROCHLORIDE
     Indication: Product used for unknown indication
  18. TRAZODONE [Suspect]
     Active Substance: TRAZODONE HYDROCHLORIDE
     Route: 065
  19. TRAZODONE [Suspect]
     Active Substance: TRAZODONE HYDROCHLORIDE
     Route: 065
  20. TRAZODONE [Suspect]
     Active Substance: TRAZODONE HYDROCHLORIDE
  21. METHAMPHETAMINE [Suspect]
     Active Substance: METHAMPHETAMINE
     Indication: Product used for unknown indication
  22. METHAMPHETAMINE [Suspect]
     Active Substance: METHAMPHETAMINE
     Route: 065
  23. METHAMPHETAMINE [Suspect]
     Active Substance: METHAMPHETAMINE
     Route: 065
  24. METHAMPHETAMINE [Suspect]
     Active Substance: METHAMPHETAMINE
  25. DIPHENHYDRAMINE [Suspect]
     Active Substance: DIPHENHYDRAMINE
     Indication: Product used for unknown indication
  26. DIPHENHYDRAMINE [Suspect]
     Active Substance: DIPHENHYDRAMINE
     Route: 065
  27. DIPHENHYDRAMINE [Suspect]
     Active Substance: DIPHENHYDRAMINE
     Route: 065
  28. DIPHENHYDRAMINE [Suspect]
     Active Substance: DIPHENHYDRAMINE
  29. AMPHETAMINE [Suspect]
     Active Substance: AMPHETAMINE
     Indication: Product used for unknown indication
  30. AMPHETAMINE [Suspect]
     Active Substance: AMPHETAMINE
     Route: 065
  31. AMPHETAMINE [Suspect]
     Active Substance: AMPHETAMINE
     Route: 065
  32. AMPHETAMINE [Suspect]
     Active Substance: AMPHETAMINE
  33. FENTANYL [Suspect]
     Active Substance: FENTANYL
     Indication: Product used for unknown indication
  34. FENTANYL [Suspect]
     Active Substance: FENTANYL
     Route: 065
  35. FENTANYL [Suspect]
     Active Substance: FENTANYL
     Route: 065
  36. FENTANYL [Suspect]
     Active Substance: FENTANYL
  37. ETIZOLAM [Suspect]
     Active Substance: ETIZOLAM
     Indication: Product used for unknown indication
  38. ETIZOLAM [Suspect]
     Active Substance: ETIZOLAM
     Route: 065
  39. ETIZOLAM [Suspect]
     Active Substance: ETIZOLAM
     Route: 065
  40. ETIZOLAM [Suspect]
     Active Substance: ETIZOLAM
  41. CARFENTANIL C-11 [Suspect]
     Active Substance: CARFENTANIL C-11
     Indication: Product used for unknown indication
  42. CARFENTANIL C-11 [Suspect]
     Active Substance: CARFENTANIL C-11
     Route: 065
  43. CARFENTANIL C-11 [Suspect]
     Active Substance: CARFENTANIL C-11
     Route: 065
  44. CARFENTANIL C-11 [Suspect]
     Active Substance: CARFENTANIL C-11
  45. COCAINE [Suspect]
     Active Substance: COCAINE
     Indication: Product used for unknown indication
  46. COCAINE [Suspect]
     Active Substance: COCAINE
     Route: 065
  47. COCAINE [Suspect]
     Active Substance: COCAINE
     Route: 065
  48. COCAINE [Suspect]
     Active Substance: COCAINE

REACTIONS (1)
  - Toxicity to various agents [Fatal]
